FAERS Safety Report 8382929-5 (Version None)
Quarter: 2012Q2

REPORT INFORMATION
  Report Type: 
  Country: None (occurrence: None)
  Receive Date: 20120509
  Receipt Date: 20120424
  Transmission Date: 20120825
  Serious: Yes (Hospitalization)
  Sender: FDA-Public Use
  Company Number: 2012PROUSA01247

PATIENT
  Age: 78 Year
  Sex: Male
  Weight: 104.3 kg

DRUGS (12)
  1. WARFARIN SODIUM [Concomitant]
  2. DITROPAN XL [Concomitant]
  3. LISINOPRIL [Concomitant]
  4. LOVASTATIN [Concomitant]
  5. TAMSULOSIN HCL [Concomitant]
  6. VITAMIN B12 [Concomitant]
  7. CLOBETASOL (CLOBETASOL) [Concomitant]
  8. 8-HYDROXYQUINOLINE-5-SULFONIC ACID (8-HYDROXYQUINOLINE-5-SULFONIC ACID [Concomitant]
  9. GLIPIZIDE [Concomitant]
  10. CALCIUM + VITAMIN D /01483701/ (CALCIUM, COLECALCIFEROL) [Concomitant]
  11. PROVENGE [Suspect]
     Indication: PROSTATE CANCER METASTATIC
     Dosage: 250 ML, SINGLE, INTRAVENOUS
     Route: 042
     Dates: start: 20120322, end: 20120322
  12. TRIAMCINOLON	/00031901/ (TRIAMCINOLONE) [Concomitant]

REACTIONS (2)
  - URINARY RETENTION [None]
  - PYREXIA [None]
